FAERS Safety Report 12085381 (Version 1)
Quarter: 2016Q1

REPORT INFORMATION
  Report Type: Spontaneous
  Country: None (occurrence: US)
  Receive Date: 20160217
  Receipt Date: 20160217
  Transmission Date: 20160526
  Serious: No
  Sender: FDA-Public Use
  Company Number: US-NEPHRON PHARMACEUTICALS CORPORATION-1048005

PATIENT
  Age: 74 Year
  Sex: Female

DRUGS (16)
  1. ERYTHROMYCIN. [Concomitant]
     Active Substance: ERYTHROMYCIN
  2. TRILEPTAL [Concomitant]
     Active Substance: OXCARBAZEPINE
  3. CLONAZEPAM. [Concomitant]
     Active Substance: CLONAZEPAM
  4. POTASSIUM [Concomitant]
     Active Substance: POTASSIUM
  5. LASIX [Concomitant]
     Active Substance: FUROSEMIDE
  6. PRAVASTATIN [Concomitant]
     Active Substance: PRAVASTATIN\PRAVASTATIN SODIUM
  7. IPRATROPIUM BROMIDE AND ALBUTEROL SULFATE [Suspect]
     Active Substance: ALBUTEROL SULFATE\IPRATROPIUM BROMIDE
     Indication: PNEUMONIA
     Route: 055
  8. LAMICTAL [Concomitant]
     Active Substance: LAMOTRIGINE
  9. ALBUTEROL. [Concomitant]
     Active Substance: ALBUTEROL
  10. OMEPRAZOLE. [Concomitant]
     Active Substance: OMEPRAZOLE
  11. ASPIRIN. [Concomitant]
     Active Substance: ASPIRIN
  12. PROBIOTIC [Concomitant]
     Active Substance: PROBIOTICS NOS
  13. LYRICA [Concomitant]
     Active Substance: PREGABALIN
  14. NORCO [Concomitant]
     Active Substance: ACETAMINOPHEN\HYDROCODONE BITARTRATE
  15. METHYLPREDNISOLONE. [Concomitant]
     Active Substance: METHYLPREDNISOLONE
  16. QVAR [Concomitant]
     Active Substance: BECLOMETHASONE DIPROPIONATE

REACTIONS (9)
  - Pain [Unknown]
  - Chest pain [None]
  - Treatment noncompliance [None]
  - Osteoarthritis [None]
  - Pneumonia [None]
  - Flatulence [None]
  - Hypertension [None]
  - Neuropathy peripheral [None]
  - Drug dose omission [None]

NARRATIVE: CASE EVENT DATE: 20150301
